FAERS Safety Report 6637840-4 (Version None)
Quarter: 2010Q1

REPORT INFORMATION
  Report Type: 
  Country: None (occurrence: None)
  Receive Date: 20100315
  Receipt Date: 20100315
  Transmission Date: 20100710
  Serious: Yes (Disabling)
  Sender: FDA-Public Use
  Company Number: None

PATIENT
  Age: 49 Year
  Sex: Female
  Weight: 81.6475 kg

DRUGS (1)
  1. XIBROM [Suspect]
     Indication: CATARACT OPERATION
     Dosage: ONE DROP EXPLAINED ABOVE
     Dates: start: 20100206, end: 20100305

REACTIONS (5)
  - CAUSTIC INJURY [None]
  - OROPHARYNGEAL PAIN [None]
  - PYREXIA [None]
  - ULCER [None]
  - VOCAL CORD DISORDER [None]
